FAERS Safety Report 5593878-X (Version None)
Quarter: 2008Q1

REPORT INFORMATION
  Report Type: 
  Country: None (occurrence: None)
  Receive Date: 20080116
  Receipt Date: 20080108
  Transmission Date: 20080703
  Serious: Yes (Hospitalization)
  Sender: FDA-Public Use
  Company Number: US-GENENTECH-253933

PATIENT
  Age: 60 Year
  Sex: Female

DRUGS (16)
  1. RITUXIMAB [Suspect]
     Indication: B-CELL LYMPHOMA
     Dosage: 375 MG/M2, UNK
     Route: 042
     Dates: start: 20070405
  2. RITUXIMAB [Suspect]
     Dosage: 375 MG/M2, UNK
     Route: 042
     Dates: start: 20070503
  3. RITUXIMAB [Suspect]
     Dosage: 375 MG/M2, UNK
     Route: 042
     Dates: start: 20070531
  4. RITUXIMAB [Suspect]
     Dates: start: 20070628
  5. FLUDARABINE PHOSPHATE [Concomitant]
     Indication: B-CELL LYMPHOMA
     Dosage: 25 MG/M2, UNK
     Route: 042
     Dates: start: 20070405
  6. FLUDARABINE PHOSPHATE [Concomitant]
     Dosage: 25 MG/M2, UNK
     Route: 042
     Dates: start: 20070503
  7. FLUDARABINE PHOSPHATE [Concomitant]
     Dosage: 25 MG/M2, UNK
     Route: 042
     Dates: start: 20070531
  8. FLUDARABINE PHOSPHATE [Concomitant]
     Dosage: 25 MG/M2, UNK
     Route: 042
  9. NOVANTRONE [Concomitant]
     Indication: B-CELL LYMPHOMA
     Dosage: 10 MG/M2, UNK
     Route: 042
     Dates: start: 20070405
  10. NOVANTRONE [Concomitant]
     Dosage: 10 MG/M2, UNK
     Route: 042
     Dates: start: 20070503
  11. NOVANTRONE [Concomitant]
     Dosage: 10 MG/M2, UNK
     Route: 042
     Dates: start: 20070531
  12. NOVANTRONE [Concomitant]
     Dosage: 10 MG/M2, UNK
     Dates: start: 20070628
  13. DEXAMETHASONE TAB [Concomitant]
     Indication: B-CELL LYMPHOMA
     Dosage: 20 MG, UNK
     Route: 048
     Dates: start: 20070405
  14. DEXAMETHASONE TAB [Concomitant]
     Dosage: 20 MG, UNK
     Route: 048
     Dates: start: 20070503
  15. DEXAMETHASONE TAB [Concomitant]
     Dosage: 20 MG, UNK
     Route: 048
     Dates: start: 20070531
  16. DEXAMETHASONE TAB [Concomitant]
     Dosage: 20 MG, UNK
     Dates: start: 20070628

REACTIONS (1)
  - FEBRILE NEUTROPENIA [None]
